FAERS Safety Report 4449610-6 (Version None)
Quarter: 2004Q3

REPORT INFORMATION
  Report Type: 
  Country: None (occurrence: None)
  Receive Date: 20040913
  Receipt Date: 20040827
  Transmission Date: 20050211
  Serious: Yes (Death)
  Sender: FDA-Public Use
  Company Number: 8006950

PATIENT
  Age: 35 Year
  Sex: Male

DRUGS (1)
  1. HYDROCODONE [Suspect]

REACTIONS (8)
  - AUTOIMMUNE THYROIDITIS [None]
  - BRONCHOPNEUMONIA [None]
  - HEPATIC STEATOSIS [None]
  - MULTI-ORGAN DISORDER [None]
  - OVERDOSE [None]
  - PORTAL TRIADITIS [None]
  - PULMONARY CONGESTION [None]
  - PULMONARY OEDEMA [None]
